FAERS Safety Report 8319106-X (Version None)
Quarter: 2012Q2

REPORT INFORMATION
  Report Type: 
  Country: None (occurrence: None)
  Receive Date: 20120427
  Receipt Date: 20120425
  Transmission Date: 20120825
  Serious: Yes (Hospitalization)
  Sender: FDA-Public Use
  Company Number: RO-SHIRE-SPV1-2012-00423

PATIENT
  Age: 3 Year
  Sex: Male

DRUGS (1)
  1. ELAPRASE [Suspect]
     Indication: MUCOPOLYSACCHARIDOSIS II
     Dosage: 12 MG, 1X/WEEK
     Route: 041
     Dates: start: 20111001

REACTIONS (2)
  - THERAPEUTIC RESPONSE DELAYED [None]
  - RESPIRATORY TRACT INFECTION [None]
